FAERS Safety Report 20195816 (Version 1)
Quarter: 2021Q4

REPORT INFORMATION
  Report Type: Spontaneous
  Country: PL (occurrence: PL)
  Receive Date: 20211216
  Receipt Date: 20211216
  Transmission Date: 20220303
  Serious: Yes (Hospitalization)
  Sender: FDA-Public Use
  Company Number: PL-BLUEFISH PHARMACEUTICALS AB-2021BF001354

PATIENT
  Age: 49 Year
  Sex: Female

DRUGS (5)
  1. OLANZAPINE [Interacting]
     Active Substance: OLANZAPINE
     Indication: Psychiatric disorder prophylaxis
     Dosage: 10 MILLIGRAM, (2 X DAY- 2 TIMES A DAY)
     Route: 065
  2. DIAZEPAM [Concomitant]
     Active Substance: DIAZEPAM
     Indication: Product used for unknown indication
     Dosage: 10 MILLIGRAM, BID
     Route: 065
  3. OMEPRAZOLE [Concomitant]
     Active Substance: OMEPRAZOLE
     Dosage: 20 MILLIGRAM (2X20 MG)
     Route: 065
  4. MEROPENEM [Concomitant]
     Active Substance: MEROPENEM
     Indication: Product used for unknown indication
     Dosage: 1 MILLIGRAM, TID (1 MILLIGRAM, 3 TIMES A DAY)
     Route: 065
  5. METRONIDAZOLE [Concomitant]
     Active Substance: METRONIDAZOLE
     Dosage: 500 MILLIGRAM, TID (500 MILLIGRAM, 3 TIMES A DAY)
     Route: 065

REACTIONS (2)
  - Drug interaction [Recovering/Resolving]
  - Drug ineffective [Recovering/Resolving]
